FAERS Safety Report 4366412-X (Version None)
Quarter: 2004Q2

REPORT INFORMATION
  Report Type: 
  Country: None (occurrence: None)
  Receive Date: 20040527
  Receipt Date: 20040310
  Transmission Date: 20050107
  Serious: Yes (Hospitalization)
  Sender: FDA-Public Use
  Company Number: US-BRISTOL-MYERS SQUIBB COMPANY-12530705

PATIENT
  Age: 70 Year
  Sex: Female

DRUGS (4)
  1. ERBITUX [Suspect]
     Indication: COLORECTAL CANCER
     Route: 042
     Dates: start: 20040310, end: 20040310
  2. ASPIRIN [Concomitant]
  3. MULTIVITAMIN [Concomitant]
  4. LORTAB [Concomitant]

REACTIONS (1)
  - INFUSION RELATED REACTION [None]
